FAERS Safety Report 20946452 (Version 1)
Quarter: 2022Q2

REPORT INFORMATION
  Report Type: Spontaneous
  Country: US (occurrence: None)
  Receive Date: 20220610
  Receipt Date: 20220610
  Transmission Date: 20220721
  Serious: No
  Sender: FDA-Public Use
  Company Number: None

PATIENT
  Age: 31 Year
  Sex: Female

DRUGS (1)
  1. GLATOPA [Suspect]
     Active Substance: GLATIRAMER ACETATE
     Dosage: 20MG DAILY SUBCUTANEOUS
     Route: 058
     Dates: start: 201701

REACTIONS (3)
  - Drug exposure before pregnancy [None]
  - Exposure via breast milk [None]
  - Therapy interrupted [None]

NARRATIVE: CASE EVENT DATE: 20220531
